FAERS Safety Report 5120816-6 (Version None)
Quarter: 2006Q4

REPORT INFORMATION
  Report Type: 
  Country: None (occurrence: None)
  Receive Date: 20061005
  Receipt Date: 20060927
  Transmission Date: 20070319
  Serious: Yes (Hospitalization)
  Sender: FDA-Public Use
  Company Number: US-JNJFOC-20060906578

PATIENT
  Sex: Male
  Weight: 63.96 kg

DRUGS (18)
  1. FENTANYL TRANSDERMAL SYSTEM [Suspect]
     Route: 062
  2. FENTANYL TRANSDERMAL SYSTEM [Suspect]
     Route: 062
  3. FENTANYL TRANSDERMAL SYSTEM [Suspect]
     Indication: PAIN
     Route: 062
  4. ASPIRIN [Concomitant]
     Route: 048
  5. LIPITOR [Concomitant]
     Route: 048
  6. NPH INSULIN [Concomitant]
     Dosage: 26U AM AND 24U PM
     Route: 058
  7. ALPHAGAN [Concomitant]
     Route: 031
  8. CAPSAICIN [Concomitant]
     Route: 061
  9. DILTIAZEM HCL [Concomitant]
     Route: 048
  10. FOLIC ACID [Concomitant]
     Route: 048
  11. GEMFIBROZIL [Concomitant]
     Route: 048
  12. GLYBURIDE [Concomitant]
     Route: 048
  13. OXYCODONE HCL [Concomitant]
     Route: 048
  14. LAMISIL [Concomitant]
     Route: 048
  15. ISOSORBIDE [Concomitant]
     Route: 048
  16. LISINOPRIL [Concomitant]
     Route: 048
  17. OMEPRAZOLE [Concomitant]
     Route: 048
  18. ZOLOFT [Concomitant]
     Route: 048

REACTIONS (4)
  - COMA [None]
  - INCORRECT DRUG ADMINISTRATION DURATION [None]
  - KIDNEY INFECTION [None]
  - RESPIRATORY ARREST [None]
